FAERS Safety Report 19252862 (Version 1)
Quarter: 2021Q2

REPORT INFORMATION
  Report Type: Spontaneous
  Country: US (occurrence: US)
  Receive Date: 20210513
  Receipt Date: 20210513
  Transmission Date: 20210717
  Serious: Yes (Other)
  Sender: FDA-Public Use
  Company Number: None

PATIENT
  Age: 70 Year
  Sex: Female
  Weight: 49.5 kg

DRUGS (9)
  1. NURTEC ODT [Concomitant]
     Active Substance: RIMEGEPANT SULFATE
  2. FAMOTIDINE. [Concomitant]
     Active Substance: FAMOTIDINE
  3. ZOLEDRONIC ACID [Suspect]
     Active Substance: ZOLEDRONIC ACID
     Indication: OSTEOPOROSIS
     Dosage: ?          OTHER FREQUENCY:YEARLY;?
     Route: 042
     Dates: start: 20210506, end: 20210506
  4. ASPIRIN. [Concomitant]
     Active Substance: ASPIRIN
  5. WIXELA INHUB [Concomitant]
     Active Substance: FLUTICASONE PROPIONATE\SALMETEROL XINAFOATE
  6. ACETAMINOPHEN. [Concomitant]
     Active Substance: ACETAMINOPHEN
     Dates: start: 20210506, end: 20210506
  7. CETIRIZINE [Concomitant]
     Active Substance: CETIRIZINE HYDROCHLORIDE
  8. OLMESARTAN [Concomitant]
     Active Substance: OLMESARTAN
  9. FLONASE [Concomitant]
     Active Substance: FLUTICASONE PROPIONATE

REACTIONS (5)
  - Rash [None]
  - Musculoskeletal stiffness [None]
  - Pruritus [None]
  - Pyrexia [None]
  - Confusional state [None]

NARRATIVE: CASE EVENT DATE: 20210510
